FAERS Safety Report 23132549 (Version 1)
Quarter: 2023Q4

REPORT INFORMATION
  Report Type: Spontaneous
  Country: GR (occurrence: GR)
  Receive Date: 20231101
  Receipt Date: 20231101
  Transmission Date: 20240110
  Serious: Yes (Other)
  Sender: FDA-Public Use
  Company Number: GR-TARGET-451

PATIENT
  Sex: Female

DRUGS (2)
  1. MIRTAZAPINE [Suspect]
     Active Substance: MIRTAZAPINE
     Indication: Sleep disorder
     Dosage: 15 MILLIGRAM
     Route: 048
  2. VALPROIC ACID [Concomitant]
     Active Substance: VALPROIC ACID
     Indication: Juvenile myoclonic epilepsy
     Dosage: PATIENT WITH ^JUVENILE MYOCLONIC EPILEPSY^ UNDER TREATMENT WITH A THERAPEUTIC DOSE OF VALPROATE AND

REACTIONS (1)
  - Myoclonic epilepsy [Recovered/Resolved]
